FAERS Safety Report 15814423 (Version 8)
Quarter: 2022Q1

REPORT INFORMATION
  Report Type: Report from Study
  Country: CA (occurrence: CA)
  Receive Date: 20190111
  Receipt Date: 20220323
  Transmission Date: 20220423
  Serious: Yes (Other)
  Sender: FDA-Public Use
  Company Number: CA-TAKEDA-2019TUS000414

PATIENT
  Age: 20 Year
  Sex: Male

DRUGS (10)
  1. PANTOPRAZOLE SODIUM [Suspect]
     Active Substance: PANTOPRAZOLE SODIUM
     Dosage: UNK
     Route: 065
     Dates: start: 20161116
  2. ENTYVIO [Suspect]
     Active Substance: VEDOLIZUMAB
     Indication: Crohn^s disease
     Dosage: 300 MG
     Route: 042
     Dates: start: 20161208
  3. ENTYVIO [Suspect]
     Active Substance: VEDOLIZUMAB
     Dosage: 300 MG EVERY SIX WEEKS
     Route: 042
     Dates: start: 20190329
  4. ENTYVIO [Suspect]
     Active Substance: VEDOLIZUMAB
     Dosage: 300 MG, MONTHLY (EVERY FOUR WEEKS)
     Route: 042
     Dates: start: 20190927
  5. ENTYVIO [Suspect]
     Active Substance: VEDOLIZUMAB
     Dosage: 300 MG, MONTHLY (EVERY FOUR WEEKS)
     Route: 042
  6. ENTYVIO [Suspect]
     Active Substance: VEDOLIZUMAB
     Dosage: 300 MG, MONTHLY (EVERY FOUR WEEKS)
     Route: 042
  7. ENTYVIO [Suspect]
     Active Substance: VEDOLIZUMAB
     Dosage: 300 MG, MONTHLY (EVERY FOUR WEEKS)
     Route: 042
  8. ENTOCORT [Concomitant]
     Active Substance: BUDESONIDE
     Dosage: 3 MG, 1X/DAY
  9. IMURAN [Concomitant]
     Active Substance: AZATHIOPRINE
     Dosage: 50 MG, 1X/DAY
     Route: 048
  10. IMURAN [Concomitant]
     Active Substance: AZATHIOPRINE
     Dosage: 125 MG, 1X/DAY
     Route: 048

REACTIONS (2)
  - Crohn^s disease [Unknown]
  - Stress [Unknown]
